FAERS Safety Report 4814505-2 (Version None)
Quarter: 2005Q4

REPORT INFORMATION
  Report Type: 
  Country: None (occurrence: None)
  Receive Date: 20051028
  Receipt Date: 20051020
  Transmission Date: 20060501
  Serious: Yes (Hospitalization)
  Sender: FDA-Public Use
  Company Number: US-MERCK-0510USA08047

PATIENT
  Age: 78 Year
  Sex: Male

DRUGS (3)
  1. VYTORIN [Suspect]
     Indication: HYPERCHOLESTEROLAEMIA
     Route: 048
     Dates: start: 20050407, end: 20050101
  2. HYZAAR [Concomitant]
     Route: 048
  3. GLUCOTROL [Concomitant]
     Route: 065

REACTIONS (1)
  - DERMATITIS EXFOLIATIVE [None]
